FAERS Safety Report 13072149 (Version 1)
Quarter: 2016Q4

REPORT INFORMATION
  Report Type: Spontaneous
  Country: GB (occurrence: GB)
  Receive Date: 20161229
  Receipt Date: 20161229
  Transmission Date: 20170207
  Serious: Yes (Death, Hospitalization, Other)
  Sender: FDA-Public Use
  Company Number: GB-TEVA-724521ACC

PATIENT
  Age: 89 Year
  Sex: Female
  Weight: 53.95 kg

DRUGS (6)
  1. AMITRIPTYLINE [Concomitant]
     Active Substance: AMITRIPTYLINE
     Dosage: 10 MILLIGRAM DAILY; AT NIGHT
  2. VITAMIN B12 [Concomitant]
     Active Substance: CYANOCOBALAMIN
  3. BISOPROLOL [Concomitant]
     Active Substance: BISOPROLOL
     Dosage: 1.25 MILLIGRAM DAILY;
  4. SOLIFENACIN [Concomitant]
     Active Substance: SOLIFENACIN
     Dosage: 5 MILLIGRAM DAILY;
  5. WARFARIN [Suspect]
     Active Substance: WARFARIN
     Indication: ATRIAL FIBRILLATION
     Dosage: AS PER INTERNATIONAL NORMALIZED RATIO
     Route: 048
     Dates: end: 20160820
  6. ATORVASTATIN [Concomitant]
     Active Substance: ATORVASTATIN
     Dosage: 10 MILLIGRAM DAILY; AT NIGHT

REACTIONS (3)
  - Haemorrhage intracranial [Fatal]
  - Coma scale abnormal [Unknown]
  - Fall [Unknown]

NARRATIVE: CASE EVENT DATE: 20160820
